FAERS Safety Report 5691687-4 (Version None)
Quarter: 2008Q1

REPORT INFORMATION
  Report Type: 
  Country: None (occurrence: None)
  Receive Date: 20080331
  Receipt Date: 20080325
  Transmission Date: 20080703
  Serious: Yes (Hospitalization)
  Sender: FDA-Public Use
  Company Number: 2008-00467

PATIENT
  Age: 86 Year
  Sex: Male
  Weight: 74.8 kg

DRUGS (17)
  1. VELCADE [Suspect]
     Indication: MULTIPLE MYELOMA
     Dosage: 1.30 MG/M2
     Dates: start: 20071003
  2. REVLIMID [Suspect]
     Indication: MULTIPLE MYELOMA
     Dosage: 20.00 MG
     Dates: start: 20071003
  3. DEXAMETHASONE     (DEXAMETHASONE) TABLE [Suspect]
     Indication: MULTIPLE MYELOMA
     Dosage: 10.00 MG
     Dates: start: 20071003
  4. COUMADIN [Concomitant]
  5. ACYCLOVIR [Concomitant]
  6. ASPIRIN [Concomitant]
  7. CARDURA [Concomitant]
  8. COLACE   (DOCUSATE SODIUM) [Concomitant]
  9. LASIX [Concomitant]
  10. PRAVACHOL [Concomitant]
  11. MYCELEX [Concomitant]
  12. PROTONIX [Concomitant]
  13. SENNA (SENNA) [Concomitant]
  14. VITAMIN B12 [Concomitant]
  15. ASCORBIC ACID [Concomitant]
  16. VITAMIN E [Concomitant]
  17. DIFLUCAN [Concomitant]

REACTIONS (16)
  - ANAEMIA [None]
  - ARTHRITIS BACTERIAL [None]
  - CELLULITIS [None]
  - CHONDROCALCINOSIS PYROPHOSPHATE [None]
  - DEEP VEIN THROMBOSIS [None]
  - ERYTHEMA [None]
  - FAECAL INCONTINENCE [None]
  - GAIT DISTURBANCE [None]
  - GOUT [None]
  - INTERNATIONAL NORMALISED RATIO INCREASED [None]
  - JOINT SWELLING [None]
  - JOINT WARMTH [None]
  - PROSTATIC SPECIFIC ANTIGEN INCREASED [None]
  - TENDERNESS [None]
  - URINARY INCONTINENCE [None]
  - URINARY RETENTION [None]
